FAERS Safety Report 20348902 (Version 1)
Quarter: 2022Q1

REPORT INFORMATION
  Report Type: Spontaneous
  Country: DE (occurrence: None)
  Receive Date: 20220119
  Receipt Date: 20220119
  Transmission Date: 20220423
  Serious: Yes (Other)
  Sender: FDA-Public Use
  Company Number: DE-ROCHE-3002553

PATIENT
  Sex: Male

DRUGS (1)
  1. MABTHERA [Suspect]
     Active Substance: RITUXIMAB
     Indication: Encephalitis autoimmune
     Route: 041

REACTIONS (7)
  - Neutropenia [Unknown]
  - Monoplegia [Unknown]
  - Pain in extremity [Unknown]
  - Memory impairment [Unknown]
  - Cognitive disorder [Unknown]
  - Back pain [Unknown]
  - Off label use [Unknown]
